FAERS Safety Report 6154546-9 (Version None)
Quarter: 2009Q2

REPORT INFORMATION
  Report Type: 
  Country: None (occurrence: None)
  Receive Date: 20090410
  Receipt Date: 20090410
  Transmission Date: 20091009
  Serious: Yes (Disabling)
  Sender: FDA-Public Use
  Company Number: None

PATIENT
  Age: 56 Year
  Sex: Male
  Weight: 102.0593 kg

DRUGS (2)
  1. LEVAQUIN [Suspect]
     Indication: INFECTION
     Dosage: 300 MG 2 X DAY
     Dates: start: 20080715
  2. LEVAQUIN [Suspect]
     Indication: LIVER DISORDER
     Dosage: 300 MG 2 X DAY
     Dates: start: 20080715

REACTIONS (3)
  - ABASIA [None]
  - ARTHROPATHY [None]
  - PAIN [None]
